FAERS Safety Report 9275953 (Version 1)
Quarter: 2012Q4

REPORT INFORMATION
  Report Type: Spontaneous
  Country: US (occurrence: None)
  Receive Date: 20121109
  Receipt Date: 20121109
  Transmission Date: 20130627
  Serious: Yes (Other)
  Sender: FDA-Public Use
  Company Number: 2011S1000646

PATIENT
  Sex: Female

DRUGS (4)
  1. CUBICIN [Suspect]
     Indication: CELLULITIS
  2. CUBICIN [Suspect]
     Indication: STAPHYLOCOCCAL INFECTION
  3. PLAVIX [Concomitant]
  4. PRAVACHOL [Concomitant]

REACTIONS (6)
  - Neuropathy peripheral [None]
  - Gait disturbance [None]
  - Pain [None]
  - Quality of life decreased [None]
  - Infection [None]
  - Drug ineffective [None]
